FAERS Safety Report 9135632 (Version 1)
Quarter: 2013Q1

REPORT INFORMATION
  Report Type: Spontaneous
  Country: US (occurrence: US)
  Receive Date: 20130219
  Receipt Date: 20130219
  Transmission Date: 20140127
  Serious: No
  Sender: FDA-Public Use
  Company Number: US-BRISTOL-MYERS SQUIBB COMPANY-16781163

PATIENT
  Age: 55 Year
  Sex: Female

DRUGS (1)
  1. ABATACEPT SUBQ INJECTION 125MG/ML [Suspect]
     Indication: RHEUMATOID ARTHRITIS
     Dosage: LAST DOSE: 13-JUL-2012.?DURATION: ABOUT 3 MONTHS.
     Route: 058
     Dates: start: 2012

REACTIONS (3)
  - Abdominal pain [Recovering/Resolving]
  - Nausea [Unknown]
  - Gastrointestinal tract irritation [Unknown]
